FAERS Safety Report 6668599-2 (Version None)
Quarter: 2010Q2

REPORT INFORMATION
  Report Type: 
  Country: None (occurrence: None)
  Receive Date: 20100406
  Receipt Date: 20100401
  Transmission Date: 20101027
  Serious: Yes (Death)
  Sender: FDA-Public Use
  Company Number: BR-BRISTOL-MYERS SQUIBB COMPANY-15045974

PATIENT
  Sex: Female

DRUGS (1)
  1. RUBRANOVA INJ [Suspect]

REACTIONS (1)
  - DEATH [None]
